FAERS Safety Report 9282132 (Version 1)
Quarter: 2013Q2

REPORT INFORMATION
  Report Type: Spontaneous
  Country: US (occurrence: None)
  Receive Date: 20130508
  Receipt Date: 20130508
  Transmission Date: 20140414
  Serious: Yes (Hospitalization)
  Sender: FDA-Public Use
  Company Number: None

PATIENT
  Age: 22 None
  Sex: Female
  Weight: 42.2 kg

DRUGS (7)
  1. CEFADROXIL [Suspect]
     Route: 048
     Dates: start: 20110117, end: 20110126
  2. MYCOPHENOLATE [Concomitant]
  3. PREDNISONE [Concomitant]
  4. TACROLIMUS [Concomitant]
  5. MAGNESIUM  OXIDE [Concomitant]
  6. SODIUM BICARBONATE [Concomitant]
  7. POTASSIUM CHOLORIDE [Concomitant]

REACTIONS (4)
  - Dysuria [None]
  - Chills [None]
  - Nausea [None]
  - Vomiting [None]
